FAERS Safety Report 25119866 (Version 1)
Quarter: 2025Q1

REPORT INFORMATION
  Report Type: Report from Study
  Country: US (occurrence: US)
  Receive Date: 20250325
  Receipt Date: 20250325
  Transmission Date: 20250408
  Serious: Yes (Other)
  Sender: UCB
  Company Number: US-UCBSA-2025011406

PATIENT
  Sex: Female

DRUGS (2)
  1. FINTEPLA [Suspect]
     Active Substance: FENFLURAMINE
     Indication: Lennox-Gastaut syndrome
     Dosage: 0.5 MILLILITER, 2X/DAY (BID)
     Dates: start: 20240919
  2. FINTEPLA [Suspect]
     Active Substance: FENFLURAMINE
     Indication: Epilepsy
     Dosage: 0.5 MILLILITER, 2X/DAY (BID)

REACTIONS (3)
  - Seizure [Recovered/Resolved]
  - Choking [Recovered/Resolved]
  - Drooling [Recovered/Resolved]
